FAERS Safety Report 17110708 (Version 2)
Quarter: 2020Q2

REPORT INFORMATION
  Report Type: Spontaneous
  Country: US (occurrence: US)
  Receive Date: 20191204
  Receipt Date: 20200429
  Transmission Date: 20200713
  Serious: No
  Sender: FDA-Public Use
  Company Number: US-PFIZER INC-2019522357

PATIENT
  Age: 87 Year
  Sex: Female
  Weight: 83.9 kg

DRUGS (4)
  1. ECONAZOLE NITRATE. [Concomitant]
     Active Substance: ECONAZOLE NITRATE
     Dosage: UNK , AS NEEDED (1 % CREAM PRN (AS NEEDED) TO GROIN)
  2. TACROLIMUS. [Concomitant]
     Active Substance: TACROLIMUS
     Dosage: UNK, AS NEEDED (0.1 % TO GROIN PRN (AS NEEDED) TO GROIN)
  3. PREMARIN [Suspect]
     Active Substance: ESTROGENS, CONJUGATED
     Indication: URINARY TRACT INFECTION
     Dosage: UNK, 2X/WEEK (2 X A WEEK @ BEDTIME )
     Route: 067
     Dates: start: 20191228
  4. NYSTATIN POWDER [Concomitant]
     Active Substance: NYSTATIN
     Dosage: UNK, AS NEEDED (GROIN - PRN (AS NEEDED))

REACTIONS (4)
  - Off label use [Unknown]
  - Urinary tract infection [Unknown]
  - Malaise [Unknown]
  - Drug ineffective for unapproved indication [Unknown]

NARRATIVE: CASE EVENT DATE: 20191228
